FAERS Safety Report 4358397-7 (Version None)
Quarter: 2004Q2

REPORT INFORMATION
  Report Type: 
  Country: None (occurrence: None)
  Receive Date: 20040514
  Receipt Date: 20020128
  Transmission Date: 20050107
  Serious: Yes (Other)
  Sender: FDA-Public Use
  Company Number: US-ROCHE-306088

PATIENT
  Age: 34 Year
  Sex: Female
  Weight: 68 kg

DRUGS (2)
  1. KLONOPIN [Suspect]
     Indication: ANXIETY
     Route: 048
     Dates: start: 19921215, end: 20010915
  2. CLONAZEPAM [Concomitant]
     Indication: ANXIETY
     Route: 048
     Dates: start: 20010515, end: 20010915

REACTIONS (13)
  - ABDOMINAL DISTENSION [None]
  - ABDOMINAL PAIN [None]
  - BLOOD URINE [None]
  - ENDOMETRIOSIS [None]
  - HYPERHIDROSIS [None]
  - INSOMNIA [None]
  - MENSTRUATION IRREGULAR [None]
  - OVARIAN FAILURE [None]
  - PHARMACEUTICAL PRODUCT COMPLAINT [None]
  - TREMOR [None]
  - URINARY RETENTION [None]
  - UTERINE LEIOMYOMA [None]
  - VAGINAL INFECTION [None]
